FAERS Safety Report 23626272 (Version 2)
Quarter: 2024Q2

REPORT INFORMATION
  Report Type: Other
  Country: US (occurrence: US)
  Receive Date: 20240313
  Receipt Date: 20240429
  Transmission Date: 20240716
  Serious: No
  Sender: FDA-Public Use
  Company Number: US-TRAVERE-2024TVT00237

PATIENT
  Age: 47 Year
  Sex: Male

DRUGS (2)
  1. FILSPARI [Suspect]
     Active Substance: SPARSENTAN
     Indication: IgA nephropathy
     Route: 048
     Dates: start: 20240306
  2. FILSPARI [Suspect]
     Active Substance: SPARSENTAN
     Route: 048

REACTIONS (4)
  - Inappropriate schedule of product administration [Unknown]
  - Eye swelling [Unknown]
  - Fatigue [Unknown]
  - Chromaturia [Unknown]

NARRATIVE: CASE EVENT DATE: 20240306
